FAERS Safety Report 19428684 (Version 1)
Quarter: 2021Q2

REPORT INFORMATION
  Report Type: Spontaneous
  Country: US (occurrence: US)
  Receive Date: 20210617
  Receipt Date: 20210617
  Transmission Date: 20210717
  Serious: Yes (Hospitalization)
  Sender: FDA-Public Use
  Company Number: None

PATIENT

DRUGS (1)
  1. CARBOPLATIN. [Suspect]
     Active Substance: CARBOPLATIN
     Dosage: ?          OTHER FREQUENCY:Q 3 WEEKS;?
     Route: 041

REACTIONS (2)
  - Blood pressure increased [None]
  - Pain in jaw [None]

NARRATIVE: CASE EVENT DATE: 20210611
